FAERS Safety Report 6146574-4 (Version None)
Quarter: 2009Q2

REPORT INFORMATION
  Report Type: 
  Country: None (occurrence: None)
  Receive Date: 20090407
  Receipt Date: 20090330
  Transmission Date: 20091009
  Serious: Yes (Other)
  Sender: FDA-Public Use
  Company Number: US-AMGEN-US341454

PATIENT
  Sex: Male

DRUGS (1)
  1. ENBREL [Suspect]
     Indication: DRUG USE FOR UNKNOWN INDICATION
     Dosage: UNSPECIFIED
     Route: 065

REACTIONS (2)
  - HELICOBACTER INFECTION [None]
  - TRICHURIASIS [None]
